FAERS Safety Report 7428790-4 (Version None)
Quarter: 2011Q2

REPORT INFORMATION
  Report Type: 
  Country: None (occurrence: None)
  Receive Date: 20110421
  Receipt Date: 20110414
  Transmission Date: 20111010
  Serious: Yes (Other)
  Sender: FDA-Public Use
  Company Number: US-BRISTOL-MYERS SQUIBB COMPANY-15080625

PATIENT
  Age: 56 Year
  Sex: Female
  Weight: 105 kg

DRUGS (13)
  1. DRAMAMINE [Concomitant]
  2. PERI-COLACE [Concomitant]
  3. VALIUM [Concomitant]
  4. PRAVACHOL [Concomitant]
  5. ONGLYZA [Suspect]
     Indication: TYPE 2 DIABETES MELLITUS
     Dates: start: 20100401
  6. PREMARIN [Concomitant]
  7. MIRAPEX [Concomitant]
  8. LORTAB [Concomitant]
  9. LOPID [Concomitant]
  10. NEXIUM [Concomitant]
  11. OXYCONTIN [Concomitant]
  12. CALCIUM + VITAMIN D [Concomitant]
  13. ALLEGRA [Concomitant]

REACTIONS (1)
  - OROPHARYNGEAL BLISTERING [None]
